FAERS Safety Report 13090089 (Version 1)
Quarter: 2017Q1

REPORT INFORMATION
  Report Type: Spontaneous
  Country: JP (occurrence: JP)
  Receive Date: 20170105
  Receipt Date: 20170105
  Transmission Date: 20170428
  Serious: Yes (Death, Hospitalization, Other)
  Sender: FDA-Public Use
  Company Number: JP-WARNER CHILCOTT 2016-002781

PATIENT
  Age: 90 Year
  Sex: Female

DRUGS (4)
  1. TEPRENONE [Concomitant]
     Active Substance: TEPRENONE
  2. CELECOX [Concomitant]
     Active Substance: CELECOXIB
  3. ACTONEL [Suspect]
     Active Substance: RISEDRONATE SODIUM
     Indication: OSTEOPOROSIS
     Route: 048
     Dates: start: 20130902, end: 20160215
  4. ELCITONIN [Concomitant]
     Active Substance: ELCATONIN
     Dates: start: 20130826, end: 20140212

REACTIONS (3)
  - Cervix carcinoma [None]
  - Haemorrhage [None]
  - Renal impairment [None]
